FAERS Safety Report 7989084-1 (Version None)
Quarter: 2011Q4

REPORT INFORMATION
  Report Type: 
  Country: None (occurrence: None)
  Receive Date: 20111219
  Receipt Date: 20111212
  Transmission Date: 20120403
  Serious: Yes (Hospitalization)
  Sender: FDA-Public Use
  Company Number: BR-US-EMD SERONO, INC.-7101601

PATIENT
  Sex: Female

DRUGS (3)
  1. CLONAZEPAM [Concomitant]
  2. REBIF [Suspect]
     Indication: RELAPSING-REMITTING MULTIPLE SCLEROSIS
     Dates: start: 20070402
  3. VENLAFAXINE [Concomitant]

REACTIONS (2)
  - BREAST CALCIFICATIONS [None]
  - PARAESTHESIA [None]
